FAERS Safety Report 7834274-1 (Version None)
Quarter: 2011Q4

REPORT INFORMATION
  Report Type: 
  Country: None (occurrence: None)
  Receive Date: 20111024
  Receipt Date: 20111017
  Transmission Date: 20120403
  Serious: Yes (Other)
  Sender: FDA-Public Use
  Company Number: US-PFIZER INC-2011250560

PATIENT
  Sex: Male

DRUGS (1)
  1. PRISTIQ [Suspect]
     Dosage: UNK

REACTIONS (2)
  - DIZZINESS [None]
  - HYPOTENSION [None]
